FAERS Safety Report 4943131-X (Version None)
Quarter: 2006Q1

REPORT INFORMATION
  Report Type: 
  Country: None (occurrence: None)
  Receive Date: 20060314
  Receipt Date: 20051026
  Transmission Date: 20060701
  Serious: Yes (Other)
  Sender: FDA-Public Use
  Company Number: US-MERCK-0510USA09512

PATIENT
  Age: 56 Year
  Sex: Male
  Weight: 118 kg

DRUGS (10)
  1. VIOXX [Suspect]
     Indication: ARTHRITIS
     Route: 048
     Dates: start: 19990615, end: 20010106
  2. AXID [Concomitant]
     Route: 065
  3. LANOXIN [Concomitant]
     Indication: HEART RATE
     Route: 065
     Dates: start: 19990101, end: 20020621
  4. REZULIN [Concomitant]
     Route: 065
  5. ASPIRIN [Concomitant]
     Indication: PROPHYLAXIS
     Route: 065
     Dates: start: 19990101
  6. LASIX [Concomitant]
     Indication: OEDEMA PERIPHERAL
     Route: 065
     Dates: start: 19990101, end: 20050721
  7. PRINIVIL [Concomitant]
     Indication: HYPERTENSION
     Route: 065
     Dates: start: 19990101, end: 20020523
  8. PRAVACHOL [Concomitant]
     Route: 065
     Dates: start: 19990123, end: 20000302
  9. ISOSORBIDE [Concomitant]
     Indication: CARDIAC DISORDER
     Route: 065
     Dates: start: 19990101
  10. NORVASC [Concomitant]
     Route: 065

REACTIONS (9)
  - ANGINA PECTORIS [None]
  - ARRHYTHMIA [None]
  - ATRIAL FIBRILLATION [None]
  - CARDIAC DISORDER [None]
  - CARDIAC FAILURE CONGESTIVE [None]
  - CORONARY ARTERY DISEASE [None]
  - PERIPHERAL VASCULAR DISORDER [None]
  - SINUS DISORDER [None]
  - TRANSIENT ISCHAEMIC ATTACK [None]
